FAERS Safety Report 24658408 (Version 2)
Quarter: 2024Q4

REPORT INFORMATION
  Report Type: Spontaneous
  Country: CA (occurrence: CA)
  Receive Date: 20241125
  Receipt Date: 20241205
  Transmission Date: 20250114
  Serious: Yes (Other)
  Sender: CELLTRION
  Company Number: CA-PFIZER INC-202400291174

PATIENT

DRUGS (6)
  1. INFLECTRA [Suspect]
     Active Substance: INFLIXIMAB-DYYB
     Indication: Crohn^s disease
     Dosage: 5 MG/KG, EVERY 8 WEEKS (ROUNDED TO NEAREST 100MG)
     Route: 042
     Dates: start: 20240820
  2. INFLECTRA [Suspect]
     Active Substance: INFLIXIMAB-DYYB
     Dosage: 500 MG (5 MG/KG), AFTER 14 WEEKS (PRESCRIBED EVERY 8 WEEKS), (ROUNDED TO NEAREST 100MG)
     Route: 042
     Dates: start: 20241126
  3. DULOXETINE [Concomitant]
     Active Substance: DULOXETINE
     Dosage: 60 MG
  4. OMEPRAZOLE [Concomitant]
     Active Substance: OMEPRAZOLE
     Dosage: 20 MG
  5. ROSUVASTATIN [Concomitant]
     Active Substance: ROSUVASTATIN
     Dosage: 5 MG
  6. TELMISARTAN [Concomitant]
     Active Substance: TELMISARTAN
     Dosage: 40 MG

REACTIONS (1)
  - Spinal operation [Recovering/Resolving]

NARRATIVE: CASE EVENT DATE: 20241015
